APPROVED DRUG PRODUCT: CYSTO-CONRAY II
Active Ingredient: IOTHALAMATE MEGLUMINE
Strength: 17.2%
Dosage Form/Route: SOLUTION;INTRAVESICAL
Application: N017057 | Product #002
Applicant: LIEBEL-FLARSHEIM CO LLC
Approved: Approved Prior to Jan 1, 1982 | RLD: No | RS: No | Type: RX